FAERS Safety Report 22357473 (Version 1)
Quarter: 2023Q2

REPORT INFORMATION
  Report Type: Spontaneous
  Country: US (occurrence: US)
  Receive Date: 20230524
  Receipt Date: 20230524
  Transmission Date: 20230722
  Serious: No
  Sender: FDA-Public Use
  Company Number: US-PURDUE-USA-2022-0298495

PATIENT

DRUGS (31)
  1. LIDOCAINE [Suspect]
     Active Substance: LIDOCAINE
     Indication: Back pain
     Dosage: 5 PERCENT
     Dates: start: 2022
  2. LIDOCAINE [Suspect]
     Active Substance: LIDOCAINE
     Indication: Fracture
     Dosage: UNK
     Dates: start: 20190801, end: 2021
  3. LIDOCAINE [Suspect]
     Active Substance: LIDOCAINE
     Indication: Injury
     Dosage: UNK
     Dates: start: 20210703, end: 2021
  4. LIDOCAINE [Suspect]
     Active Substance: LIDOCAINE
     Indication: Pain in extremity
     Dosage: UNK
     Dates: start: 20200801, end: 20221020
  5. LIDOCAINE [Suspect]
     Active Substance: LIDOCAINE
     Indication: Road traffic accident
  6. LIDOCAINE [Concomitant]
     Active Substance: LIDOCAINE
     Indication: Back pain
     Dosage: UNK
     Route: 065
  7. LIDOCAINE [Concomitant]
     Active Substance: LIDOCAINE
     Indication: Fracture
     Dosage: 4-6 X DAY
     Route: 065
     Dates: start: 20210703
  8. LIDOCAINE [Concomitant]
     Active Substance: LIDOCAINE
     Indication: Road traffic accident
  9. DICLOFENAC [Concomitant]
     Active Substance: DICLOFENAC
     Indication: Back pain
     Dosage: 3 PERCENT
     Route: 065
  10. DICLOFENAC [Concomitant]
     Active Substance: DICLOFENAC
     Indication: Fracture
     Dosage: 1 PERCENT
     Route: 065
  11. DICLOFENAC [Concomitant]
     Active Substance: DICLOFENAC
     Indication: Road traffic accident
     Dosage: 4-6 X DAY
     Route: 065
     Dates: start: 20210703, end: 20230211
  12. DICLOFENAC [Concomitant]
     Active Substance: DICLOFENAC
     Indication: Scleroderma
  13. DICLOFENAC SODIUM [Concomitant]
     Active Substance: DICLOFENAC SODIUM
     Indication: Scleroderma
     Dosage: TID
     Route: 065
     Dates: start: 20180130
  14. DICLOFENAC SODIUM [Concomitant]
     Active Substance: DICLOFENAC SODIUM
     Indication: Road traffic accident
  15. DICLOFENAC SODIUM [Concomitant]
     Active Substance: DICLOFENAC SODIUM
     Indication: Arthritis
  16. CYCLOBENZAPRINE [Concomitant]
     Active Substance: CYCLOBENZAPRINE
     Indication: Scleroderma
     Dosage: TID
     Route: 065
     Dates: start: 20180130
  17. CYCLOBENZAPRINE [Concomitant]
     Active Substance: CYCLOBENZAPRINE
     Indication: Road traffic accident
     Dosage: TID
     Route: 065
     Dates: start: 20180131
  18. CYCLOBENZAPRINE [Concomitant]
     Active Substance: CYCLOBENZAPRINE
     Indication: Arthritis
  19. DICLOFENAC SODIUM [Concomitant]
     Active Substance: DICLOFENAC SODIUM
     Indication: Road traffic accident
     Dosage: 4-6 X DAY
     Route: 065
     Dates: start: 20210703, end: 20230211
  20. DICLOFENAC SODIUM [Concomitant]
     Active Substance: DICLOFENAC SODIUM
     Indication: Scleroderma
  21. BETAMETHASONE [Concomitant]
     Active Substance: BETAMETHASONE
     Indication: Scleroderma
     Dosage: BID
     Route: 065
     Dates: start: 19940118
  22. BETAMETHASONE [Concomitant]
     Active Substance: BETAMETHASONE
     Indication: Morphoea
     Dosage: UNK
     Route: 065
     Dates: start: 19941103
  23. AMITRIPTYLINE HYDROCHLORIDE [Concomitant]
     Active Substance: AMITRIPTYLINE HYDROCHLORIDE
     Indication: Migraine
     Dosage: NOCTE
     Route: 065
     Dates: start: 20180130
  24. AMITRIPTYLINE HYDROCHLORIDE [Concomitant]
     Active Substance: AMITRIPTYLINE HYDROCHLORIDE
     Dosage: NOCTE
     Route: 065
     Dates: start: 202211
  25. RIZATRIPTAN [Concomitant]
     Active Substance: RIZATRIPTAN
     Indication: Migraine
     Dosage: AS NEEDED
     Route: 065
     Dates: start: 20221001
  26. RIZATRIPTAN [Concomitant]
     Active Substance: RIZATRIPTAN
     Dosage: 1 TABLET
     Route: 065
     Dates: start: 202211
  27. TRIAMCINOLONE [Concomitant]
     Active Substance: TRIAMCINOLONE
     Indication: Scleroderma
     Dosage: BID
     Route: 065
     Dates: start: 19940118
  28. TRIAMCINOLONE [Concomitant]
     Active Substance: TRIAMCINOLONE
     Indication: Morphoea
  29. SOLANTRA [Concomitant]
     Indication: Rosacea
     Dosage: BID
     Route: 065
     Dates: start: 202206
  30. FLONASE [Concomitant]
     Active Substance: FLUTICASONE PROPIONATE
     Indication: Sinusitis
     Dosage: UNK, TID
     Route: 065
     Dates: start: 20180130
  31. FLONASE [Concomitant]
     Active Substance: FLUTICASONE PROPIONATE
     Indication: Migraine

REACTIONS (7)
  - Pain [Not Recovered/Not Resolved]
  - Arthralgia [Not Recovered/Not Resolved]
  - Mobility decreased [Not Recovered/Not Resolved]
  - Loss of personal independence in daily activities [Not Recovered/Not Resolved]
  - Drug ineffective [Unknown]
  - Therapeutic product effect delayed [Unknown]
  - Product quality issue [Unknown]

NARRATIVE: CASE EVENT DATE: 20210703
